FAERS Safety Report 6120750-9 (Version None)
Quarter: 2009Q1

REPORT INFORMATION
  Report Type: 
  Country: None (occurrence: None)
  Receive Date: 20090317
  Receipt Date: 20090306
  Transmission Date: 20090719
  Serious: Yes (Other)
  Sender: FDA-Public Use
  Company Number: AU-BAYER-200915442GPV

PATIENT
  Age: 41 Year
  Sex: Male
  Weight: 86 kg

DRUGS (8)
  1. ASPIRIN [Suspect]
     Indication: THROMBOSIS PROPHYLAXIS
     Route: 048
     Dates: start: 20081219, end: 20090209
  2. CERTICAN [Suspect]
     Indication: RENAL TRANSPLANT
     Route: 048
     Dates: start: 20090206, end: 20090208
  3. CERTICAN [Suspect]
     Route: 048
     Dates: start: 20090209
  4. CERTICAN [Suspect]
     Route: 048
     Dates: start: 20090101, end: 20090205
  5. CLEXANE [Suspect]
     Indication: GLOMERULAR VASCULAR DISORDER
     Route: 058
     Dates: start: 20081231, end: 20090131
  6. NEORAL [Concomitant]
     Indication: DRUG USE FOR UNKNOWN INDICATION
  7. MYFORTIC [Concomitant]
     Indication: DRUG USE FOR UNKNOWN INDICATION
  8. CORTICOSTEROIDS [Concomitant]
     Indication: DRUG USE FOR UNKNOWN INDICATION

REACTIONS (3)
  - HAEMATOMA [None]
  - PAIN IN EXTREMITY [None]
  - THROMBOCYTOPENIA [None]
